FAERS Safety Report 11750070 (Version 5)
Quarter: 2016Q2

REPORT INFORMATION
  Report Type: Report from Study
  Country: US (occurrence: US)
  Receive Date: 20151118
  Receipt Date: 20160505
  Transmission Date: 20160815
  Serious: Yes (Other)
  Sender: FDA-Public Use
  Company Number: US-AMGEN-USASL2015121175

PATIENT
  Age: 36 Year
  Sex: Female

DRUGS (5)
  1. ENBREL [Suspect]
     Active Substance: ETANERCEPT
     Dosage: 50 MG, QWK
     Route: 058
     Dates: start: 20151120
  2. ENBREL [Suspect]
     Active Substance: ETANERCEPT
     Indication: ANKYLOSING SPONDYLITIS
     Dosage: 50 MG, QWK
     Route: 058
     Dates: start: 20141212, end: 201503
  3. MOTRIN [Concomitant]
     Active Substance: IBUPROFEN
     Dosage: UNK
  4. DIAZEPAM. [Concomitant]
     Active Substance: DIAZEPAM
     Dosage: UNK
  5. ALEVE [Concomitant]
     Active Substance: NAPROXEN SODIUM
     Dosage: UNK

REACTIONS (13)
  - Surgery [Unknown]
  - No therapeutic response [Unknown]
  - Injection site pain [Unknown]
  - Ovarian disorder [Unknown]
  - Hysterectomy [Unknown]
  - Pruritus [Unknown]
  - Rash macular [Unknown]
  - Blister [Unknown]
  - Dry skin [Unknown]
  - Contusion [Unknown]
  - Injection site bruising [Unknown]
  - Muscle tightness [Unknown]
  - Cyst rupture [Unknown]

NARRATIVE: CASE EVENT DATE: 2015
